FAERS Safety Report 7512953-3 (Version None)
Quarter: 2011Q2

REPORT INFORMATION
  Report Type: 
  Country: None (occurrence: None)
  Receive Date: 20110531
  Receipt Date: 20101202
  Transmission Date: 20111010
  Serious: No
  Sender: FDA-Public Use
  Company Number: US-NOVEN-ALL1-2010-06315

PATIENT
  Sex: Male
  Weight: 22.676 kg

DRUGS (3)
  1. DAYTRANA [Suspect]
     Dosage: 10 MG, 1X/DAY:QD
     Route: 062
     Dates: start: 20090101, end: 20100101
  2. DAYTRANA [Suspect]
     Dosage: 20 MG, 1X/DAY:QD
     Route: 062
     Dates: start: 20101117
  3. DAYTRANA [Suspect]
     Dosage: 15 MG, 1X/DAY:QD
     Route: 062
     Dates: start: 20100101, end: 20101001

REACTIONS (4)
  - APPLICATION SITE PRURITUS [None]
  - INSOMNIA [None]
  - APPLICATION SITE ERYTHEMA [None]
  - ABNORMAL LOSS OF WEIGHT [None]
